FAERS Safety Report 15274260 (Version 2)
Quarter: 2018Q3

REPORT INFORMATION
  Report Type: Spontaneous
  Country: US (occurrence: US)
  Receive Date: 20180814
  Receipt Date: 20180814
  Transmission Date: 20181010
  Serious: Yes (Death, Hospitalization, Other)
  Sender: FDA-Public Use
  Company Number: US-AUROBINDO-AUR-APL-2018-041089

PATIENT
  Age: 71 Year
  Sex: Male

DRUGS (2)
  1. PREDNISONE. [Suspect]
     Active Substance: PREDNISONE
     Dosage: 30 MILLIGRAM, DAILY
     Route: 065
  2. PREDNISONE. [Suspect]
     Active Substance: PREDNISONE
     Indication: CHRONIC MYELOMONOCYTIC LEUKAEMIA
     Dosage: 60 MILLIGRAM, DAILY
     Route: 065

REACTIONS (7)
  - Acute respiratory distress syndrome [Unknown]
  - Tachycardia [Unknown]
  - Respiratory distress [Unknown]
  - Dyspnoea [Unknown]
  - Mucormycosis [Fatal]
  - Chest pain [Unknown]
  - Hypoxia [Unknown]
